FAERS Safety Report 8600322-4 (Version None)
Quarter: 2012Q3

REPORT INFORMATION
  Report Type: 
  Country: None (occurrence: None)
  Receive Date: 20120817
  Receipt Date: 20120808
  Transmission Date: 20120928
  Serious: Yes (Death, Life-Threatening)
  Sender: FDA-Public Use
  Company Number: JP-BRISTOL-MYERS SQUIBB COMPANY-16850257

PATIENT
  Age: 2 Decade
  Sex: Male

DRUGS (1)
  1. SPRYCEL [Suspect]
     Indication: CHRONIC MYELOID LEUKAEMIA
     Route: 048

REACTIONS (4)
  - CENTRAL NERVOUS SYSTEM LESION [None]
  - PULMONARY OEDEMA [None]
  - HAEMORRHAGE [None]
  - BRAIN HERNIATION [None]
